FAERS Safety Report 12086845 (Version 1)
Quarter: 2016Q1

REPORT INFORMATION
  Report Type: Spontaneous
  Country: US (occurrence: US)
  Receive Date: 20160217
  Receipt Date: 20160217
  Transmission Date: 20160526
  Serious: No
  Sender: FDA-Public Use
  Company Number: US-ALLERGAN-1509482US

PATIENT
  Sex: Female

DRUGS (2)
  1. RESTASIS [Suspect]
     Active Substance: CYCLOSPORINE
     Indication: PRODUCT USED FOR UNKNOWN INDICATION
     Dosage: UNK
     Route: 047
     Dates: start: 201501, end: 201503
  2. ARTIFICIAL TEARS                   /00445101/ [Concomitant]

REACTIONS (2)
  - Vision blurred [Unknown]
  - Eye irritation [Unknown]

NARRATIVE: CASE EVENT DATE: 201501
